FAERS Safety Report 4701333-1 (Version None)
Quarter: 2005Q2

REPORT INFORMATION
  Report Type: 
  Country: None (occurrence: None)
  Receive Date: 20050628
  Receipt Date: 20050617
  Transmission Date: 20051028
  Serious: Yes (Hospitalization)
  Sender: FDA-Public Use
  Company Number: FR-NOVOPROD-244921

PATIENT
  Age: 84 Year
  Sex: Male

DRUGS (6)
  1. NOVONORM [Suspect]
     Indication: DIABETES MELLITUS
     Dosage: 3 MG, QD
  2. PREVISCAN [Concomitant]
     Indication: ILL-DEFINED DISORDER
     Dosage: 15 MG, QD
     Route: 048
     Dates: end: 20050516
  3. DOLIPRANE [Concomitant]
     Indication: ILL-DEFINED DISORDER
     Dosage: 3 TAB, QD
  4. LASIX [Concomitant]
     Indication: ILL-DEFINED DISORDER
     Dosage: 40 MG, QD
     Route: 048
  5. OMIX [Concomitant]
     Indication: ILL-DEFINED DISORDER
     Dosage: 3 UNK, QD
     Route: 048
  6. FORLAX [Concomitant]
     Indication: ILL-DEFINED DISORDER
     Dosage: 2 UNK, QD
     Route: 048

REACTIONS (2)
  - INTERNATIONAL NORMALISED RATIO INCREASED [None]
  - PROTHROMBIN TIME RATIO INCREASED [None]
